FAERS Safety Report 7058481-3 (Version None)
Quarter: 2010Q4

REPORT INFORMATION
  Report Type: 
  Country: None (occurrence: None)
  Receive Date: 20101022
  Receipt Date: 20100921
  Transmission Date: 20110411
  Serious: Yes (Other)
  Sender: FDA-Public Use
  Company Number: FR-ALLERGAN-1012263US

PATIENT
  Age: 59 Year
  Sex: Male

DRUGS (3)
  1. BIMATOPROST AND TIMOLOL MALEATE [Suspect]
     Indication: GLAUCOMA
     Dosage: 1 GTT, QPM
     Route: 047
     Dates: start: 20091030
  2. ALPHAGAN [Concomitant]
     Indication: PRODUCT USED FOR UNKNOWN INDICATION
     Dosage: 1 GTT, QAM
     Route: 047
  3. GARDENAL [Concomitant]
     Indication: PROPHYLAXIS

REACTIONS (1)
  - KERATITIS HERPETIC [None]
